FAERS Safety Report 12671489 (Version 1)
Quarter: 2016Q3

REPORT INFORMATION
  Report Type: Report from Study
  Country: BR (occurrence: BR)
  Receive Date: 20160822
  Receipt Date: 20160822
  Transmission Date: 20161109
  Serious: Yes (Other)
  Sender: FDA-Public Use
  Company Number: PHHY2016BR114475

PATIENT
  Sex: Female

DRUGS (1)
  1. EXELON PATCH [Suspect]
     Active Substance: RIVASTIGMINE
     Indication: DEMENTIA ALZHEIMER^S TYPE
     Dosage: PATCH 10 (CM2), UNK
     Route: 062

REACTIONS (7)
  - Pneumonia aspiration [Unknown]
  - Choking [Unknown]
  - Eating disorder [Unknown]
  - Drug ineffective [Unknown]
  - Malaise [Unknown]
  - Abasia [Unknown]
  - Speech disorder [Unknown]
